FAERS Safety Report 15213584 (Version 5)
Quarter: 2023Q4

REPORT INFORMATION
  Report Type: Spontaneous
  Country: PT (occurrence: PT)
  Receive Date: 20180730
  Receipt Date: 20231026
  Transmission Date: 20240110
  Serious: Yes (Hospitalization, Other)
  Sender: FDA-Public Use
  Company Number: None

PATIENT
  Age: 27 Year
  Sex: Female

DRUGS (4)
  1. OLANZAPINE [Suspect]
     Active Substance: OLANZAPINE
     Indication: Product used for unknown indication
     Dosage: 10 MILLIGRAM, ONCE A DAY
     Route: 065
  2. FLUTICASONE PROPIONATE\SALMETEROL XINAFOATE [Suspect]
     Active Substance: FLUTICASONE PROPIONATE\SALMETEROL XINAFOATE
     Indication: Influenza like illness
     Dosage: 1 DOSAGE FORM= (50 MCG SALMETEROL+250 MCG FLUTICASONE PROPIONATE)
     Route: 055
  3. BUDESONIDE [Suspect]
     Active Substance: BUDESONIDE
     Indication: Cough
     Dosage: 1 MILLIGRAM
     Route: 055
  4. ACETAMINOPHEN [Concomitant]
     Active Substance: ACETAMINOPHEN
     Indication: Cough
     Dosage: 1 GRAM
     Route: 042

REACTIONS (14)
  - Aggression [Recovered/Resolved]
  - Somnolence [Recovered/Resolved]
  - Behaviour disorder [Recovered/Resolved]
  - Disturbance in attention [Recovered/Resolved]
  - Delirium [Recovered/Resolved]
  - Overdose [Unknown]
  - Hallucinations, mixed [Unknown]
  - Weight increased [Unknown]
  - Restlessness [Unknown]
  - Altered state of consciousness [Recovered/Resolved]
  - Weight decreased [Recovered/Resolved]
  - Intentional product misuse [Unknown]
  - Drug use disorder [Recovered/Resolved]
  - Off label use [Recovered/Resolved]
